FAERS Safety Report 12299705 (Version 1)
Quarter: 2016Q2

REPORT INFORMATION
  Report Type: Spontaneous
  Country: US (occurrence: None)
  Receive Date: 20160422
  Receipt Date: 20160422
  Transmission Date: 20160815
  Serious: Yes (Death)
  Sender: FDA-Public Use
  Company Number: None

PATIENT
  Age: 75 Year
  Sex: Male

DRUGS (10)
  1. ZYTIGA [Suspect]
     Active Substance: ABIRATERONE ACETATE
     Indication: PROSTATE CANCER
     Route: 048
     Dates: start: 20141202
  2. PREDNISONE. [Concomitant]
     Active Substance: PREDNISONE
  3. TAMSULOSIN [Concomitant]
     Active Substance: TAMSULOSIN
  4. METFORMIN [Concomitant]
     Active Substance: METFORMIN HYDROCHLORIDE
  5. HYDROMORPHONE [Concomitant]
     Active Substance: HYDROMORPHONE
  6. LISINOPRIL. [Concomitant]
     Active Substance: LISINOPRIL
  7. FENOFIBRATE. [Concomitant]
     Active Substance: FENOFIBRATE
  8. NOVOLIN N [Concomitant]
     Active Substance: INSULIN HUMAN
  9. LANTUS [Concomitant]
     Active Substance: INSULIN GLARGINE
  10. BICALUTAMIDE. [Concomitant]
     Active Substance: BICALUTAMIDE

REACTIONS (1)
  - Death [None]

NARRATIVE: CASE EVENT DATE: 20150918
